FAERS Safety Report 17678012 (Version 1)
Quarter: 2020Q2

REPORT INFORMATION
  Report Type: Spontaneous
  Country: US (occurrence: US)
  Receive Date: 20200416
  Receipt Date: 20200416
  Transmission Date: 20200714
  Serious: No
  Sender: FDA-Public Use
  Company Number: US-ASTRAZENECA-2020SE48873

PATIENT
  Age: 28630 Day
  Sex: Female
  Weight: 68 kg

DRUGS (1)
  1. SYMBICORT [Suspect]
     Active Substance: BUDESONIDE\FORMOTEROL FUMARATE DIHYDRATE
     Indication: CHRONIC OBSTRUCTIVE PULMONARY DISEASE
     Dosage: 160/ 4.5 MCG INHALATIONS, DAILY
     Route: 055
     Dates: start: 2019

REACTIONS (5)
  - Drug ineffective [Unknown]
  - Crying [Unknown]
  - Feeling abnormal [Unknown]
  - Intentional product misuse [Not Recovered/Not Resolved]
  - Device issue [Unknown]

NARRATIVE: CASE EVENT DATE: 20200405
